FAERS Safety Report 5587187-2 (Version None)
Quarter: 2008Q1

REPORT INFORMATION
  Report Type: 
  Country: None (occurrence: None)
  Receive Date: 20080110
  Receipt Date: 20071227
  Transmission Date: 20080703
  Serious: Yes (Hospitalization)
  Sender: FDA-Public Use
  Company Number: JP-JNJFOC-20070302202

PATIENT
  Sex: Female
  Weight: 75 kg

DRUGS (39)
  1. REMICADE [Suspect]
     Route: 042
  2. REMICADE [Suspect]
     Route: 042
  3. REMICADE [Suspect]
     Route: 042
  4. REMICADE [Suspect]
     Route: 042
  5. REMICADE [Suspect]
     Route: 042
  6. REMICADE [Suspect]
     Route: 042
  7. REMICADE [Suspect]
     Route: 042
  8. REMICADE [Suspect]
     Route: 042
  9. REMICADE [Suspect]
     Route: 042
  10. REMICADE [Suspect]
     Route: 042
  11. REMICADE [Suspect]
     Route: 042
  12. REMICADE [Suspect]
     Route: 042
  13. REMICADE [Suspect]
     Route: 042
  14. REMICADE [Suspect]
     Route: 042
  15. REMICADE [Suspect]
     Route: 042
  16. REMICADE [Suspect]
     Indication: RHEUMATOID ARTHRITIS
     Route: 042
  17. PREDNISOLONE [Concomitant]
     Indication: RHEUMATOID ARTHRITIS
     Route: 048
  18. ORCL [Concomitant]
     Indication: RHEUMATOID ARTHRITIS
     Route: 048
  19. HYPEN [Concomitant]
     Indication: RHEUMATOID ARTHRITIS
     Route: 048
  20. BONALON [Concomitant]
     Indication: DRUG USE FOR UNKNOWN INDICATION
     Route: 048
  21. RHEUMATREX [Concomitant]
     Route: 048
  22. RHEUMATREX [Concomitant]
     Route: 048
  23. RHEUMATREX [Concomitant]
     Indication: RHEUMATOID ARTHRITIS
     Route: 048
  24. FOLIAMIN [Concomitant]
     Indication: PROPHYLAXIS
     Route: 048
  25. MARZULENE-S [Concomitant]
     Indication: GASTRITIS
     Route: 048
  26. MOHRUS TAPE [Concomitant]
     Indication: RHEUMATOID ARTHRITIS
     Dosage: ROUTE OF ADMIN OD, DOSAGE 1SHT
  27. MYSLEE [Concomitant]
     Indication: RHEUMATOID ARTHRITIS
     Route: 048
  28. VOLTAREN [Concomitant]
  29. VOLTAREN [Concomitant]
  30. VOLTAREN [Concomitant]
     Indication: RHEUMATOID ARTHRITIS
     Dosage: ROUTE PR
  31. ISCOTIN [Concomitant]
     Indication: ANTIBIOTIC PROPHYLAXIS
     Route: 048
  32. ISODINE GARGLE [Concomitant]
     Indication: RHEUMATOID ARTHRITIS
     Route: 048
  33. AM [Concomitant]
     Indication: GASTRITIS
     Route: 048
  34. NEO-MINOPHAGEN C [Concomitant]
     Indication: PRURITUS
     Route: 042
  35. NEO-MINOPHAGEN C [Concomitant]
     Indication: RASH
     Route: 042
  36. ALESION [Concomitant]
     Indication: PRURITUS
     Route: 048
  37. ALESION [Concomitant]
     Indication: RASH
     Route: 048
  38. GLYSENNID [Concomitant]
     Indication: DRUG USE FOR UNKNOWN INDICATION
     Route: 048
  39. DAN RICH [Concomitant]
     Indication: DRUG USE FOR UNKNOWN INDICATION
     Route: 048

REACTIONS (2)
  - ATRIAL FIBRILLATION [None]
  - URINARY TRACT INFECTION [None]
